FAERS Safety Report 11741679 (Version 1)
Quarter: 2015Q4

REPORT INFORMATION
  Report Type: Spontaneous
  Country: US (occurrence: None)
  Receive Date: 20151113
  Receipt Date: 20151113
  Transmission Date: 20160304
  Serious: No
  Sender: FDA-Public Use
  Company Number: None

PATIENT
  Age: 78 Year
  Sex: Female
  Weight: 67.13 kg

DRUGS (2)
  1. TPN [Suspect]
     Active Substance: AMINO ACIDS\DEXTROSE\ELECTROLYTES NOS\SOYBEAN OIL
  2. CARE FUSION SMART IV PUMP ALARIS [Suspect]
     Active Substance: DEVICE

REACTIONS (2)
  - Device infusion issue [None]
  - Incorrect drug administration rate [None]

NARRATIVE: CASE EVENT DATE: 20151023
